FAERS Safety Report 9165931 (Version 1)
Quarter: 2013Q1

REPORT INFORMATION
  Report Type: Spontaneous
  Country: US (occurrence: US)
  Receive Date: 20130315
  Receipt Date: 20130315
  Transmission Date: 20140127
  Serious: No
  Sender: FDA-Public Use
  Company Number: US-PFIZER INC-2013085434

PATIENT
  Age: 50 Year
  Sex: Female
  Weight: 47.62 kg

DRUGS (2)
  1. LEVOXYL [Suspect]
     Indication: HYPOTHYROIDISM
     Dosage: UNK
     Dates: start: 20130309
  2. LEVOXYL [Suspect]
     Indication: AUTOIMMUNE THYROIDITIS

REACTIONS (4)
  - Drug ineffective [Unknown]
  - Abdominal discomfort [Unknown]
  - Product quality issue [Unknown]
  - Gastrointestinal disorder [Recovered/Resolved]
